FAERS Safety Report 21969260 (Version 1)
Quarter: 2023Q1

REPORT INFORMATION
  Report Type: Spontaneous
  Country: US (occurrence: None)
  Receive Date: 20230207
  Receipt Date: 20230207
  Transmission Date: 20230418
  Serious: Yes (Other)
  Sender: FDA-Public Use
  Company Number: None

PATIENT
  Sex: Female
  Weight: 104.3 kg

DRUGS (1)
  1. SPRYCEL [Suspect]
     Active Substance: DASATINIB
     Indication: Chronic myeloid leukaemia
     Dosage: FREQUENCY : DAILY;?
     Route: 048
     Dates: start: 20210714, end: 20230206

REACTIONS (8)
  - Oedema peripheral [None]
  - Pain in extremity [None]
  - Dyspnoea [None]
  - Fatigue [None]
  - Blood potassium decreased [None]
  - Weight decreased [None]
  - Pulmonary hypertension [None]
  - Pleural effusion [None]
